FAERS Safety Report 7285705-X (Version None)
Quarter: 2011Q1

REPORT INFORMATION
  Report Type: 
  Country: None (occurrence: None)
  Receive Date: 20110210
  Receipt Date: 20110204
  Transmission Date: 20110831
  Serious: Yes (Other)
  Sender: FDA-Public Use
  Company Number: B0698720A

PATIENT
  Age: 34 Year
  Sex: Male

DRUGS (3)
  1. RELENZA [Suspect]
     Indication: INFLUENZA
     Dosage: 20MG PER DAY
     Route: 055
     Dates: start: 20110201, end: 20110201
  2. CALONAL [Concomitant]
     Route: 065
  3. ADOAIR [Concomitant]
     Route: 055

REACTIONS (4)
  - ALTERED STATE OF CONSCIOUSNESS [None]
  - SPEECH DISORDER [None]
  - RESTLESSNESS [None]
  - AMNESIA [None]
